FAERS Safety Report 7346835-7 (Version None)
Quarter: 2011Q1

REPORT INFORMATION
  Report Type: 
  Country: None (occurrence: None)
  Receive Date: 20110311
  Receipt Date: 20110302
  Transmission Date: 20110831
  Serious: Yes (Other)
  Sender: FDA-Public Use
  Company Number: US-JNJFOC-20110303322

PATIENT
  Age: 63 Year
  Sex: Female

DRUGS (3)
  1. NICORETTE LOZENGE [Suspect]
     Indication: SMOKING CESSATION THERAPY
     Route: 048
  2. NICODERM CQ [Suspect]
     Indication: SMOKING CESSATION THERAPY
     Route: 062
  3. NICORETTE CINNAMON SURGE [Suspect]
     Indication: SMOKING CESSATION THERAPY
     Route: 048

REACTIONS (4)
  - DRUG ADMINISTRATION ERROR [None]
  - INSOMNIA [None]
  - NIGHTMARE [None]
  - NICOTINE DEPENDENCE [None]
